FAERS Safety Report 10156966 (Version 1)
Quarter: 2014Q2

REPORT INFORMATION
  Report Type: Report from Study
  Country: FR (occurrence: FR)
  Receive Date: 20140507
  Receipt Date: 20140507
  Transmission Date: 20141212
  Serious: Yes (Other)
  Sender: FDA-Public Use
  Company Number: FR-JNJFOC-20140420684

PATIENT
  Sex: 0

DRUGS (2)
  1. TMC207 [Suspect]
     Indication: TUBERCULOSIS
     Route: 065
  2. TMC207 [Suspect]
     Indication: TUBERCULOSIS
     Route: 065

REACTIONS (1)
  - Coronary artery dissection [Unknown]
